FAERS Safety Report 9897994 (Version 1)
Quarter: 2014Q1

REPORT INFORMATION
  Report Type: Spontaneous
  Country: US (occurrence: US)
  Receive Date: 20140214
  Receipt Date: 20140214
  Transmission Date: 20141002
  Serious: Yes (Hospitalization, Other)
  Sender: FDA-Public Use
  Company Number: US-PFIZER INC-2014040307

PATIENT
  Age: 70 Year
  Sex: Male
  Weight: 95.24 kg

DRUGS (2)
  1. ZOLOFT [Suspect]
     Indication: NERVOUS SYSTEM DISORDER
     Dosage: UNK
     Dates: start: 201309, end: 201309
  2. JANTOVEN [Concomitant]
     Indication: BLOOD DISORDER
     Dosage: 3 MG, 1X/DAY

REACTIONS (3)
  - Blood pressure abnormal [Unknown]
  - Serotonin syndrome [Unknown]
  - Off label use [Recovered/Resolved]
